FAERS Safety Report 16239118 (Version 1)
Quarter: 2019Q2

REPORT INFORMATION
  Report Type: Spontaneous
  Country: US (occurrence: US)
  Receive Date: 20190424
  Receipt Date: 20190424
  Transmission Date: 20190711
  Serious: Yes (Disabling)
  Sender: FDA-Public Use
  Company Number: None

PATIENT
  Age: 76 Year
  Sex: Female
  Weight: 41.85 kg

DRUGS (8)
  1. FIRDAPSE [Suspect]
     Active Substance: AMIFAMPRIDINE
     Indication: MYASTHENIC SYNDROME
     Dosage: ?          QUANTITY:1 TABLET(S);OTHER FREQUENCY:5 TIMES DAILY;?
     Route: 048
     Dates: start: 20190414
  2. BUDENSONIDE [Concomitant]
  3. PRILOSEC [Concomitant]
     Active Substance: OMEPRAZOLE MAGNESIUM
  4. PYRIDOSTIGMINE [Concomitant]
     Active Substance: PYRIDOSTIGMINE
  5. GLYCOPYROLATE [Concomitant]
     Active Substance: GLYCOPYRROLATE
  6. CEPHALEXIN. [Concomitant]
     Active Substance: CEPHALEXIN
  7. LOSARTAN. [Concomitant]
     Active Substance: LOSARTAN
  8. PERFCORMIST INHALATION [Concomitant]

REACTIONS (3)
  - Asthenia [None]
  - Weight decreased [None]
  - Therapeutic product effect incomplete [None]

NARRATIVE: CASE EVENT DATE: 20190414
